FAERS Safety Report 8540657-7 (Version None)
Quarter: 2012Q3

REPORT INFORMATION
  Report Type: 
  Country: None (occurrence: None)
  Receive Date: 20120726
  Receipt Date: 20120718
  Transmission Date: 20120928
  Serious: Yes (Life-Threatening, Hospitalization, Other)
  Sender: FDA-Public Use
  Company Number: US-MPIJNJ-2012-04743

PATIENT
  Age: 17 Year
  Sex: Male
  Weight: 84.1 kg

DRUGS (8)
  1. DAUNORUBICIN HYDROCHLORIDE [Suspect]
     Indication: ACUTE MYELOID LEUKAEMIA
     Dosage: 50 MG/M2, CYCLIC
     Route: 042
     Dates: start: 20120518, end: 20120623
  2. CYTARABINE [Suspect]
     Dosage: 100 MG/M2, CYCLIC
     Route: 042
     Dates: start: 20120518, end: 20120627
  3. ETOPOSIDE [Suspect]
     Dosage: 150 MG/M2, CYCLIC
     Route: 042
     Dates: start: 20120518, end: 20120623
  4. VELCADE [Suspect]
     Indication: ACUTE MYELOID LEUKAEMIA
     Dosage: 1.3 MG/M2, CYCLIC
     Route: 040
     Dates: start: 20120518, end: 20120626
  5. DAUNORUBICIN HYDROCHLORIDE [Suspect]
     Dosage: 150 MG/M2, CYCLIC
     Route: 042
     Dates: start: 20120518, end: 20120623
  6. ETOPOSIDE [Suspect]
     Indication: ACUTE MYELOID LEUKAEMIA
     Dosage: 100 MG/M2, CYCLIC
     Route: 042
     Dates: start: 20120518, end: 20120623
  7. CYTARABINE [Suspect]
     Dosage: 1000 MG/M2, CYCLIC
     Route: 042
     Dates: start: 20120518, end: 20120627
  8. CYTARABINE [Suspect]
     Indication: ACUTE MYELOID LEUKAEMIA
     Dosage: UNK
     Route: 037
     Dates: start: 20120518, end: 20120627

REACTIONS (8)
  - PULMONARY OEDEMA [None]
  - LEFT VENTRICULAR DYSFUNCTION [None]
  - CARDIAC FAILURE [None]
  - ACUTE RESPIRATORY DISTRESS SYNDROME [None]
  - HYPOTENSION [None]
  - SEPSIS [None]
  - PYREXIA [None]
  - RESTRICTIVE CARDIOMYOPATHY [None]
